FAERS Safety Report 18696992 (Version 2)
Quarter: 2021Q1

REPORT INFORMATION
  Report Type: Spontaneous
  Country: US (occurrence: US)
  Receive Date: 20210104
  Receipt Date: 20210107
  Transmission Date: 20210419
  Serious: Yes (Life-Threatening, Other)
  Sender: FDA-Public Use
  Company Number: US-009507513-2012USA012712

PATIENT
  Age: 71 Year
  Sex: Male

DRUGS (1)
  1. COZAAR [Suspect]
     Active Substance: LOSARTAN POTASSIUM
     Indication: CHRONIC KIDNEY DISEASE
     Dosage: 100 MILLIGRAM
     Route: 048

REACTIONS (2)
  - Hyperkalaemia [Unknown]
  - Product use in unapproved indication [Unknown]
